FAERS Safety Report 6137169-7 (Version None)
Quarter: 2009Q1

REPORT INFORMATION
  Report Type: 
  Country: None (occurrence: None)
  Receive Date: 20090326
  Receipt Date: 20090326
  Transmission Date: 20090719
  Serious: Yes (Disabling, Other)
  Sender: FDA-Public Use
  Company Number: None

PATIENT
  Age: 51 Year
  Sex: Female
  Weight: 77.1115 kg

DRUGS (2)
  1. LYRICA [Suspect]
     Indication: NEURALGIA
     Dosage: 100 MG. 3 X PER DAY PO
     Route: 048
     Dates: start: 20080401, end: 20081231
  2. LYRICA [Suspect]
     Dosage: 50 MG. 3 X PER DAY PO
     Route: 048

REACTIONS (21)
  - AGITATION [None]
  - ALOPECIA [None]
  - AMNESIA [None]
  - ANGER [None]
  - BLINDNESS [None]
  - CONDITION AGGRAVATED [None]
  - CONFUSIONAL STATE [None]
  - CRYING [None]
  - DEPRESSION [None]
  - ECONOMIC PROBLEM [None]
  - HYPOAESTHESIA [None]
  - IMPAIRED WORK ABILITY [None]
  - IRRITABILITY [None]
  - LOSS OF EMPLOYMENT [None]
  - MENTAL IMPAIRMENT [None]
  - PAIN [None]
  - SWELLING [None]
  - THINKING ABNORMAL [None]
  - TREMOR [None]
  - VISION BLURRED [None]
  - WEIGHT INCREASED [None]
